FAERS Safety Report 7636010-0 (Version None)
Quarter: 2011Q3

REPORT INFORMATION
  Report Type: 
  Country: None (occurrence: None)
  Receive Date: 20110726
  Receipt Date: 20110718
  Transmission Date: 20111222
  Serious: Yes (Other)
  Sender: FDA-Public Use
  Company Number: US-SANOFI-AVENTIS-2011SA046216

PATIENT
  Sex: Male

DRUGS (10)
  1. NAPROXEN [Suspect]
     Route: 065
  2. CELEBREX [Suspect]
     Route: 065
  3. REMICADE [Suspect]
     Route: 051
  4. METHOTREXATE [Suspect]
     Route: 051
  5. PLAQUENIL [Suspect]
     Route: 065
  6. PREDNISONE [Suspect]
     Route: 065
  7. HUMIRA [Suspect]
     Route: 065
  8. GOLD [Suspect]
     Route: 051
  9. ARAVA [Suspect]
     Route: 065
  10. ETANERCEPT [Suspect]
     Route: 051

REACTIONS (1)
  - PNEUMONIA [None]
